FAERS Safety Report 12837848 (Version 2)
Quarter: 2016Q4

REPORT INFORMATION
  Report Type: Spontaneous
  Country: JP (occurrence: JP)
  Receive Date: 20161012
  Receipt Date: 20161028
  Transmission Date: 20170207
  Serious: Yes (Death)
  Sender: FDA-Public Use
  Company Number: JP-UNITED THERAPEUTICS-UNT-2016-015758

PATIENT
  Age: 31 Year
  Sex: Female
  Weight: 39 kg

DRUGS (3)
  1. REMODULIN [Suspect]
     Active Substance: TREPROSTINIL
     Indication: PULMONARY ARTERIAL HYPERTENSION
     Dosage: UNK
     Route: 041
     Dates: start: 20160728
  2. REMODULIN [Suspect]
     Active Substance: TREPROSTINIL
     Indication: SYSTEMIC LUPUS ERYTHEMATOSUS
  3. REMODULIN [Suspect]
     Active Substance: TREPROSTINIL
     Indication: CONNECTIVE TISSUE DISORDER

REACTIONS (2)
  - Condition aggravated [Fatal]
  - Right ventricular failure [Fatal]

NARRATIVE: CASE EVENT DATE: 20160918
